FAERS Safety Report 8350692-X (Version None)
Quarter: 2012Q2

REPORT INFORMATION
  Report Type: 
  Country: None (occurrence: None)
  Receive Date: 20120510
  Receipt Date: 20120507
  Transmission Date: 20120825
  Serious: Yes (Hospitalization)
  Sender: FDA-Public Use
  Company Number: US-GLAXOSMITHKLINE-A0861729A

PATIENT
  Age: 56 Year
  Sex: Male

DRUGS (1)
  1. AVANDIA [Suspect]
     Indication: DIABETES MELLITUS
     Route: 048
     Dates: start: 20010101, end: 20060601

REACTIONS (7)
  - HEAT STROKE [None]
  - ARTERIAL OCCLUSIVE DISEASE [None]
  - BACK PAIN [None]
  - MYOCARDIAL INFARCTION [None]
  - ANAEMIA [None]
  - OEDEMA PERIPHERAL [None]
  - ATRIAL FIBRILLATION [None]
